FAERS Safety Report 16758797 (Version 1)
Quarter: 2019Q3

REPORT INFORMATION
  Report Type: Spontaneous
  Country: US (occurrence: US)
  Receive Date: 20190830
  Receipt Date: 20190830
  Transmission Date: 20191005
  Serious: No
  Sender: FDA-Public Use
  Company Number: US-ASTRAZENECA-2019SF10967

PATIENT
  Age: 896 Month
  Sex: Female
  Weight: 90.7 kg

DRUGS (1)
  1. BEVESPI AEROSPHERE [Suspect]
     Active Substance: FORMOTEROL FUMARATE\GLYCOPYRROLATE
     Indication: BRONCHIAL OBSTRUCTION
     Dosage: 9MCG/4.8MCG TWO PUFFS TWICE A DAY
     Route: 055
     Dates: start: 2017

REACTIONS (3)
  - Product cleaning inadequate [Unknown]
  - Device issue [Unknown]
  - Pneumonia [Unknown]

NARRATIVE: CASE EVENT DATE: 201802
